FAERS Safety Report 4341370-2 (Version None)
Quarter: 2004Q2

REPORT INFORMATION
  Report Type: 
  Country: None (occurrence: None)
  Receive Date: 20040412
  Receipt Date: 20030430
  Transmission Date: 20050107
  Serious: Yes (Life-Threatening, Hospitalization)
  Sender: FDA-Public Use
  Company Number: HQWYE983830APR03

PATIENT
  Age: 43 Year
  Sex: Male
  Weight: 84.1 kg

DRUGS (15)
  1. METOCLOPRAMIDE [Suspect]
     Indication: GASTROINTESTINAL MOTILITY DISORDER
     Dosage: 10 MG Q6HR PO
     Route: 048
     Dates: start: 20030101, end: 20030127
  2. METOCLOPRAMIDE HYDROCHLORIDE [Suspect]
     Indication: GASTROINTESTINAL MOTILITY DISORDER
     Dosage: 10 MG Q6HR IV
     Route: 042
     Dates: start: 20030127, end: 20030127
  3. VANOMYCIN [Concomitant]
  4. GENTAMICIN [Concomitant]
  5. DOCUSATE [Concomitant]
  6. SENNA [Concomitant]
  7. LANSOPRAZOLE [Concomitant]
  8. FLUOXETINE HCL [Concomitant]
  9. CYCLOBENZAPRINE [Concomitant]
  10. PHENOBARBITAL TAB [Concomitant]
  11. NAFCILLIN SODIUM [Concomitant]
  12. HYDRALAZINE HCL [Concomitant]
  13. ONDANSETRON [Concomitant]
  14. ACETAMINOPHEN [Concomitant]
  15. CODEINE [Concomitant]

REACTIONS (1)
  - NEUROLEPTIC MALIGNANT SYNDROME [None]
